FAERS Safety Report 4426222-1 (Version None)
Quarter: 2004Q3

REPORT INFORMATION
  Report Type: 
  Country: None (occurrence: None)
  Receive Date: 20040811
  Receipt Date: 20040729
  Transmission Date: 20050211
  Serious: Yes (Hospitalization)
  Sender: FDA-Public Use
  Company Number: 2004044884

PATIENT
  Age: 67 Year
  Sex: Male

DRUGS (3)
  1. NORVASC [Suspect]
     Indication: HYPERTENSION
     Dosage: 5 MG (1 D), ORAL
     Route: 048
     Dates: end: 20040101
  2. VALSARTAN [Concomitant]
  3. DOXAZOSIN MESYLATE [Concomitant]

REACTIONS (1)
  - GINGIVAL HYPERPLASIA [None]
